FAERS Safety Report 9053694 (Version 1)
Quarter: 2013Q1

REPORT INFORMATION
  Report Type: Spontaneous
  Country: US (occurrence: None)
  Receive Date: 20130201
  Receipt Date: 20130201
  Transmission Date: 20140127
  Serious: Yes (Other)
  Sender: FDA-Public Use
  Company Number: None

PATIENT
  Age: 55 Year
  Sex: Male
  Weight: 92.99 kg

DRUGS (2)
  1. TAMIFLU 75MG [Suspect]
     Indication: ANTIVIRAL PROPHYLAXIS
     Dosage: 1 CAPSULE DAILY PO
     Route: 048
     Dates: start: 20130122, end: 20130131
  2. ATORVASTATIN [Concomitant]

REACTIONS (1)
  - Abnormal dreams [None]
